FAERS Safety Report 26200528 (Version 1)
Quarter: 2025Q4

REPORT INFORMATION
  Report Type: Spontaneous
  Country: EU (occurrence: EU)
  Receive Date: 20251225
  Receipt Date: 20251225
  Transmission Date: 20260117
  Serious: Yes (Other)
  Sender: JOHNSON AND JOHNSON
  Company Number: None

PATIENT
  Age: 36 Year
  Sex: Female
  Weight: 56 kg

DRUGS (2)
  1. TOPIRAMATE [Suspect]
     Active Substance: TOPIRAMATE
     Indication: Migraine
     Dosage: DOSE GRADUALLY INCREASED FROM 25 MG
     Route: 048
     Dates: start: 20250929, end: 20251109
  2. Levothyroxine / Levaxin tab 75 mikrog [Concomitant]
     Indication: Product used for unknown indication
     Route: 048

REACTIONS (14)
  - Delirium [Recovered/Resolved]
  - Suspiciousness [Recovered/Resolved]
  - Disturbance in attention [Recovering/Resolving]
  - Hypoaesthesia [Recovered/Resolved]
  - Reading disorder [Recovering/Resolving]
  - Ocular discomfort [Recovering/Resolving]
  - Panic attack [Recovered/Resolved]
  - Vomiting [Recovered/Resolved]
  - Dysarthria [Recovered/Resolved]
  - Learning disorder [Recovering/Resolving]
  - Renal pain [Recovered/Resolved]
  - Insomnia [Recovered/Resolved]
  - Muscle spasms [Recovered/Resolved]
  - Alopecia [Recovering/Resolving]

NARRATIVE: CASE EVENT DATE: 20250901
